FAERS Safety Report 9979013 (Version 1)
Quarter: 2014Q1

REPORT INFORMATION
  Report Type: Report from Study
  Country: US (occurrence: US)
  Receive Date: 20140306
  Receipt Date: 20140306
  Transmission Date: 20141002
  Serious: No
  Sender: FDA-Public Use
  Company Number: US-ABBVIE-13P-163-1171842-00

PATIENT
  Sex: Male
  Weight: 107.6 kg

DRUGS (9)
  1. HUMIRA [Suspect]
     Indication: PSORIATIC ARTHROPATHY
     Dates: start: 2009, end: 2010
  2. HUMIRA [Suspect]
     Indication: PSORIASIS
     Dates: start: 2010, end: 2011
  3. METHOTREXATE [Suspect]
     Indication: PSORIASIS
     Dates: start: 2011, end: 201309
  4. METHOTREXATE [Suspect]
     Indication: PSORIATIC ARTHROPATHY
  5. METOPROLOL [Concomitant]
     Indication: HYPERTENSION
  6. ATORVASTATIN [Concomitant]
     Indication: BLOOD CHOLESTEROL INCREASED
  7. SERTRALINE [Concomitant]
     Indication: DEPRESSION
  8. SERTRALINE [Concomitant]
     Indication: ANXIETY
  9. MULTIVITAMIN [Concomitant]
     Indication: VITAMIN SUPPLEMENTATION

REACTIONS (7)
  - Drug ineffective [Not Recovered/Not Resolved]
  - Nasopharyngitis [Recovered/Resolved]
  - Pneumonia [Recovered/Resolved]
  - Unevaluable event [Not Recovered/Not Resolved]
  - Fatigue [Not Recovered/Not Resolved]
  - Arthralgia [Not Recovered/Not Resolved]
  - Psoriasis [Not Recovered/Not Resolved]
